FAERS Safety Report 23756869 (Version 1)
Quarter: 2024Q2

REPORT INFORMATION
  Report Type: Spontaneous
  Country: US (occurrence: US)
  Receive Date: 20240418
  Receipt Date: 20240418
  Transmission Date: 20240716
  Serious: Yes (Other)
  Sender: FDA-Public Use
  Company Number: US-GTI-000238

PATIENT
  Age: 20 Year
  Sex: Female

DRUGS (10)
  1. PREDNISONE [Suspect]
     Active Substance: PREDNISONE
     Indication: Immunosuppression
     Route: 048
  2. PREDNISONE [Suspect]
     Active Substance: PREDNISONE
     Indication: Transplant rejection
     Route: 048
  3. TACROLIMUS [Suspect]
     Active Substance: TACROLIMUS
     Indication: Immunosuppression
     Route: 065
  4. DIFLUPREDNATE [Suspect]
     Active Substance: DIFLUPREDNATE
     Indication: Immunosuppression
     Route: 061
  5. DIFLUPREDNATE [Suspect]
     Active Substance: DIFLUPREDNATE
     Indication: Transplant rejection
     Route: 061
  6. MOXIFLOXACIN [Concomitant]
     Active Substance: MOXIFLOXACIN
     Indication: Antibiotic prophylaxis
     Route: 061
  7. TOBRAMYCIN [Concomitant]
     Active Substance: TOBRAMYCIN\TOBRAMYCIN SULFATE
     Indication: Antibiotic prophylaxis
     Route: 061
  8. AZATHIOPRINE [Suspect]
     Active Substance: AZATHIOPRINE
     Indication: Immunosuppression
     Route: 065
  9. TRIAMCINOLONE [Suspect]
     Active Substance: TRIAMCINOLONE
     Indication: Immunosuppression
     Route: 065
  10. TACROLIMUS [Suspect]
     Active Substance: TACROLIMUS
     Indication: Transplant rejection
     Route: 065

REACTIONS (7)
  - Transplant rejection [Recovering/Resolving]
  - Ocular surface stem cell transplant rejection [Recovering/Resolving]
  - Disease progression [Recovering/Resolving]
  - Disease recurrence [Recovering/Resolving]
  - Conjunctival haemorrhage [Recovering/Resolving]
  - Drug resistance [Recovering/Resolving]
  - Treatment noncompliance [Unknown]
